FAERS Safety Report 8884969 (Version 1)
Quarter: 2012Q4

REPORT INFORMATION
  Report Type: 
  Country: CA (occurrence: CA)
  Receive Date: 20121102
  Receipt Date: 20121102
  Transmission Date: 20130627
  Serious: Yes (Death, Other)
  Sender: FDA-Public Use
  Company Number: CA-PFIZER INC-2012265433

PATIENT
  Age: 50 Year
  Sex: Female

DRUGS (1)
  1. CELEBREX [Suspect]
     Dosage: 200 mg, 1x/day

REACTIONS (1)
  - Myocardial ischaemia [Fatal]
